FAERS Safety Report 8764058 (Version 2)
Quarter: 2013Q1

REPORT INFORMATION
  Report Type: Spontaneous
  Country: US (occurrence: US)
  Receive Date: 20120831
  Receipt Date: 20130221
  Transmission Date: 20140127
  Serious: Yes (Death, Hospitalization)
  Sender: FDA-Public Use
  Company Number: US-B.I. PHARMACEUTICALS,INC./RIDGEFIELD-2012-BP-21089BP

PATIENT
  Sex: Male
  Weight: 72.57 kg

DRUGS (9)
  1. PRADAXA [Suspect]
     Indication: ATRIAL FIBRILLATION
     Dates: start: 201008, end: 201009
  2. DIGITEK [Concomitant]
  3. FUROSEMIDE [Concomitant]
  4. ENALAPRIL [Concomitant]
  5. LESCOL [Concomitant]
  6. NEXIUM [Concomitant]
  7. TOPRAL [Concomitant]
  8. CILOSTAZOL [Concomitant]
  9. POTASSIUM [Concomitant]

REACTIONS (4)
  - Gastrointestinal haemorrhage [Fatal]
  - Haemorrhage [Unknown]
  - Renal haemorrhage [Unknown]
  - Respiratory failure [Unknown]
